FAERS Safety Report 7167966-0 (Version None)
Quarter: 2010Q4

REPORT INFORMATION
  Report Type: 
  Country: None (occurrence: None)
  Receive Date: 20101216
  Receipt Date: 20101208
  Transmission Date: 20110411
  Serious: Yes (Hospitalization, Other)
  Sender: FDA-Public Use
  Company Number: US-PFIZER INC-2010167411

PATIENT
  Sex: Male
  Weight: 68.027 kg

DRUGS (1)
  1. PHENYTOIN [Suspect]
     Indication: PARTIAL SEIZURES
     Dosage: 300 MG, 2X/DAY
     Route: 048
     Dates: start: 20100803

REACTIONS (1)
  - COMPLEX PARTIAL SEIZURES [None]
